FAERS Safety Report 6819941-0 (Version None)
Quarter: 2010Q3

REPORT INFORMATION
  Report Type: 
  Country: None (occurrence: None)
  Receive Date: 20100707
  Receipt Date: 20100629
  Transmission Date: 20110219
  Serious: Yes (Hospitalization)
  Sender: FDA-Public Use
  Company Number: PL-ROCHE-711552

PATIENT
  Sex: Male
  Weight: 80 kg

DRUGS (6)
  1. BEVACIZUMAB [Suspect]
     Indication: RENAL CELL CARCINOMA
     Route: 042
     Dates: start: 20100406, end: 20100614
  2. INTERFERON ALFA [Suspect]
     Indication: RENAL CELL CARCINOMA
     Dosage: DOSE REPORTED: 3, 6 MIU.
     Route: 058
     Dates: start: 20100406, end: 20100614
  3. TEMSIROLIMUS [Suspect]
     Indication: RENAL CELL CARCINOMA
     Route: 042
     Dates: start: 20100406, end: 20100614
  4. PILOCARPIN [Concomitant]
     Indication: GLAUCOMA
     Dosage: DRUG REPORTED: PILOCARPINA.
     Dates: start: 20000101
  5. BIMATOPROST AND TIMOLOL MALEATE [Concomitant]
     Dates: start: 20000101
  6. LOPERAMIL [Concomitant]
     Dates: start: 20100618

REACTIONS (1)
  - PERITONITIS [None]
